FAERS Safety Report 18434165 (Version 1)
Quarter: 2020Q4

REPORT INFORMATION
  Report Type: Spontaneous
  Country: JP (occurrence: JP)
  Receive Date: 20201028
  Receipt Date: 20201028
  Transmission Date: 20210114
  Serious: Yes (Other)
  Sender: FDA-Public Use
  Company Number: JP-INFO-001098

PATIENT
  Age: 31 Year
  Sex: Female

DRUGS (3)
  1. BUPIVACAINE 0.5% [Suspect]
     Active Substance: BUPIVACAINE
     Indication: SPINAL ANAESTHESIA
     Dosage: ?
     Route: 008
  2. ROPIVACAINE 0.25% [Suspect]
     Active Substance: ROPIVACAINE
     Indication: EPIDURAL ANALGESIA
     Route: 065
  3. LIDOCAINE 1 % [Suspect]
     Active Substance: LIDOCAINE
     Indication: EPIDURAL TEST DOSE
     Route: 008

REACTIONS (2)
  - Immune system disorder [Recovering/Resolving]
  - Myelitis transverse [Recovering/Resolving]
